FAERS Safety Report 15325088 (Version 6)
Quarter: 2019Q4

REPORT INFORMATION
  Report Type: Report from Study
  Country: US (occurrence: US)
  Receive Date: 20180828
  Receipt Date: 20191202
  Transmission Date: 20200122
  Serious: Yes (Other)
  Sender: FDA-Public Use
  Company Number: US-TESARO, INC-US-2018TSO03188

PATIENT
  Age: 75 Year
  Sex: Female

DRUGS (7)
  1. NIRAPARIB [Suspect]
     Active Substance: NIRAPARIB
     Dosage: 200 MG, UNK
     Route: 048
     Dates: start: 20180618
  2. NIRAPARIB [Suspect]
     Active Substance: NIRAPARIB
     Dosage: 200 MG, DAILY
     Route: 048
     Dates: start: 20180618
  3. NIRAPARIB [Suspect]
     Active Substance: NIRAPARIB
     Dosage: 200 MG, DAILY
     Route: 048
  4. NIRAPARIB [Suspect]
     Active Substance: NIRAPARIB
     Indication: OVARIAN CANCER
     Dosage: 200 MG, QD
     Route: 065
     Dates: start: 20180614
  5. SODIUM BICARBONATE. [Concomitant]
     Active Substance: SODIUM BICARBONATE
     Indication: PRODUCT USED FOR UNKNOWN INDICATION
     Dosage: UNK
  6. SUDAFED [Concomitant]
     Active Substance: PSEUDOEPHEDRINE HYDROCHLORIDE
     Indication: PRODUCT USED FOR UNKNOWN INDICATION
     Dosage: UNK
  7. NIRAPARIB [Suspect]
     Active Substance: NIRAPARIB
     Dosage: 200 MG, DAILY
     Route: 048

REACTIONS (34)
  - Pain [Recovering/Resolving]
  - Nausea [Unknown]
  - Heart rate decreased [Not Recovered/Not Resolved]
  - Abdominal discomfort [Unknown]
  - Cholecystectomy [Unknown]
  - Tumour marker increased [Not Recovered/Not Resolved]
  - Haemoglobin decreased [Unknown]
  - Blood potassium increased [Not Recovered/Not Resolved]
  - Oral disorder [Unknown]
  - Abdominal discomfort [Not Recovered/Not Resolved]
  - Heart rate increased [Not Recovered/Not Resolved]
  - Unevaluable event [Not Recovered/Not Resolved]
  - Intentional underdose [Not Recovered/Not Resolved]
  - Blood count abnormal [Not Recovered/Not Resolved]
  - Dyspnoea [Not Recovered/Not Resolved]
  - Fatigue [Not Recovered/Not Resolved]
  - Nasopharyngitis [Unknown]
  - Product quality issue [Unknown]
  - Pruritus [Not Recovered/Not Resolved]
  - Renal pain [Unknown]
  - Cough [Unknown]
  - Muscle spasms [Not Recovered/Not Resolved]
  - Laryngitis [Unknown]
  - Adverse drug reaction [Unknown]
  - Abdominal distension [Not Recovered/Not Resolved]
  - Aphthous ulcer [Not Recovered/Not Resolved]
  - Pain in jaw [Recovering/Resolving]
  - Product dose omission [Unknown]
  - Stomatitis [Not Recovered/Not Resolved]
  - Anxiety [Not Recovered/Not Resolved]
  - Ear disorder [Recovering/Resolving]
  - Renal impairment [Not Recovered/Not Resolved]
  - Musculoskeletal chest pain [Unknown]
  - Palpitations [Unknown]

NARRATIVE: CASE EVENT DATE: 20180614
